FAERS Safety Report 19361919 (Version 3)
Quarter: 2021Q2

REPORT INFORMATION
  Report Type: Report from Study
  Country: JP (occurrence: JP)
  Receive Date: 20210603
  Receipt Date: 20210629
  Transmission Date: 20210717
  Serious: Yes (Hospitalization)
  Sender: FDA-Public Use
  Company Number: JP-ROCHE-2841042

PATIENT
  Age: 40 Year
  Sex: Female
  Weight: 49.7 kg

DRUGS (10)
  1. BIOFERMIN R [Concomitant]
     Active Substance: DIETARY SUPPLEMENT\PROBIOTICS
     Indication: DIARRHOEA
     Dosage: 1 DOSAGE FORM, TID
     Route: 048
     Dates: start: 20210513
  2. AMY109 [Suspect]
     Active Substance: INVESTIGATIONAL PRODUCT
     Indication: RECTOSIGMOID CANCER METASTATIC
     Dosage: 2286 MILLIGRAM, ONCE/3WEEKS
     Route: 042
     Dates: start: 20210513
  3. MAGNESIUM OXIDE. [Concomitant]
     Active Substance: MAGNESIUM OXIDE
     Indication: CONSTIPATION
     Dosage: 500 MILLIGRAM, TID
     Route: 048
     Dates: start: 20210513
  4. CALONAL [Concomitant]
     Active Substance: ACETAMINOPHEN
     Indication: PAIN
     Dosage: 600 MILLIGRAM, IN PAIN
     Route: 048
     Dates: start: 20210515
  5. SENNOSIDE A+B [Concomitant]
     Active Substance: SENNOSIDES A AND B
     Indication: CONSTIPATION
     Dosage: 48 MILLIGRAM, DURING CONSTIPATION
     Route: 048
     Dates: start: 20210518
  6. MENOAID [Concomitant]
     Indication: PROPHYLAXIS
     Dosage: 1 PATCH, BIW, START DATE: BEFORE THE START OF STUDY TREATMENT
     Route: 062
  7. NEXIUM [Concomitant]
     Active Substance: ESOMEPRAZOLE MAGNESIUM
     Indication: GASTRITIS PROPHYLAXIS
     Dosage: START DATE: BEFORE THE START OF STUDY TREATMENT
     Route: 048
  8. HIRUDOID [Concomitant]
     Active Substance: GLYCOSAMINOGLYCANS
     Indication: DRY SKIN
     Dosage: APPROPRIATE AMOUNT, SEVERAL TIMES A DAY, START DATE: BEFORE THE START OF STUDY TREATMENT
     Route: 003
  9. ATEZOLIZUMAB. [Suspect]
     Active Substance: ATEZOLIZUMAB
     Indication: RECTOSIGMOID CANCER METASTATIC
     Route: 042
     Dates: start: 20210513
  10. GOOFICE [Concomitant]
     Active Substance: ELOBIXIBAT
     Indication: CONSTIPATION
     Dosage: 5 MILLIGRAM, TID, START DATE: BEFORE THE START OF STUDY TREATMENT
     Route: 048

REACTIONS (1)
  - Viral infection [Recovered/Resolved]

NARRATIVE: CASE EVENT DATE: 20210524
